FAERS Safety Report 9014481 (Version 1)
Quarter: 2013Q1

REPORT INFORMATION
  Report Type: Report from Study
  Country: JP (occurrence: JP)
  Receive Date: 20130115
  Receipt Date: 20130115
  Transmission Date: 20140127
  Serious: Yes (Hospitalization)
  Sender: FDA-Public Use
  Company Number: JP-GLAXOSMITHKLINE-B0858098A

PATIENT
  Age: 51 Year
  Sex: Female
  Weight: 64 kg

DRUGS (3)
  1. TYKERB [Suspect]
     Indication: BREAST CANCER
     Route: 048
     Dates: start: 20110225, end: 20111015
  2. XELODA [Suspect]
     Route: 048
     Dates: start: 20110225, end: 20110506
  3. VITAMEDIN [Concomitant]
     Indication: PROPHYLAXIS
     Route: 048
     Dates: start: 20110225, end: 20111015

REACTIONS (2)
  - Pericardial effusion [Not Recovered/Not Resolved]
  - Electrocardiogram T wave abnormal [Unknown]
